FAERS Safety Report 6344109-4 (Version None)
Quarter: 2009Q3

REPORT INFORMATION
  Report Type: 
  Country: None (occurrence: None)
  Receive Date: 20090908
  Receipt Date: 20090831
  Transmission Date: 20100115
  Serious: Yes (Hospitalization)
  Sender: FDA-Public Use
  Company Number: BR-ASTRAZENECA-2009SE11221

PATIENT
  Age: 87 Year
  Sex: Male
  Weight: 80 kg

DRUGS (2)
  1. ATACAND HCT [Suspect]
     Indication: HYPERTENSION
     Dosage: 16/12.5 MG BID
     Route: 048
     Dates: start: 20090101, end: 20090401
  2. FORASEQ [Concomitant]
     Indication: ANGINA PECTORIS
     Dosage: TWO TIMES A DAY
     Route: 048
     Dates: start: 19990101

REACTIONS (3)
  - BLOOD POTASSIUM INCREASED [None]
  - DYSURIA [None]
  - RENAL FAILURE [None]
